FAERS Safety Report 12875736 (Version 1)
Quarter: 2016Q4

REPORT INFORMATION
  Report Type: Spontaneous
  Country: US (occurrence: US)
  Receive Date: 20161024
  Receipt Date: 20161024
  Transmission Date: 20170207
  Serious: No
  Sender: FDA-Public Use
  Company Number: US-BAYER-2016-199802

PATIENT
  Sex: Female

DRUGS (3)
  1. AMPYRA [Suspect]
     Active Substance: DALFAMPRIDINE
     Dosage: UNK
     Dates: start: 201504
  2. INTERFERON BETA-1A [INTERFERON BETA-1A] [Suspect]
     Active Substance: INTERFERON BETA-1A
     Dosage: UNK
  3. ALEVE [Suspect]
     Active Substance: NAPROXEN SODIUM
     Indication: PAIN
     Dosage: UNK

REACTIONS (9)
  - Nausea [Unknown]
  - Injection site erythema [Unknown]
  - Nightmare [Unknown]
  - Malaise [Unknown]
  - Asthenia [None]
  - Chills [Unknown]
  - Pain [Unknown]
  - Fatigue [Unknown]
  - Headache [Unknown]
